FAERS Safety Report 25709256 (Version 2)
Quarter: 2025Q3

REPORT INFORMATION
  Report Type: Spontaneous
  Country: EU (occurrence: EU)
  Receive Date: 20250821
  Receipt Date: 20250911
  Transmission Date: 20251021
  Serious: Yes (Life-Threatening, Hospitalization)
  Sender: TEVA
  Company Number: EU-TEVA-VS-3363000

PATIENT
  Age: 21 Year
  Sex: Female

DRUGS (11)
  1. PYRIDOXINE [Suspect]
     Active Substance: PYRIDOXINE
     Indication: Nausea
     Route: 065
  2. SODIUM CHLORIDE [Suspect]
     Active Substance: SODIUM CHLORIDE
     Indication: Vomiting
     Route: 042
  3. LECITHIN [Suspect]
     Active Substance: LECITHIN
     Indication: Cholestasis of pregnancy
     Route: 065
  4. THIAMINE [Suspect]
     Active Substance: THIAMINE
     Indication: Vitamin B1 decreased
     Dosage: HIGH DOSE
     Route: 042
  5. PANTOPRAZOLE [Suspect]
     Active Substance: PANTOPRAZOLE
     Indication: Gastritis
     Route: 048
  6. URSODIOL [Suspect]
     Active Substance: URSODIOL
     Indication: Cholestasis of pregnancy
     Route: 048
  7. WHEY [Suspect]
     Active Substance: WHEY
     Indication: Supplementation therapy
     Dosage: HYDROLYSATE
     Route: 065
  8. FAMOTIDINE [Suspect]
     Active Substance: FAMOTIDINE
     Indication: Vomiting
     Route: 065
  9. DEXTROSE [Suspect]
     Active Substance: DEXTROSE MONOHYDRATE
     Indication: Vomiting
     Route: 042
  10. DOXYLAMINE [Suspect]
     Active Substance: DOXYLAMINE
     Indication: Nausea
     Route: 065
  11. PHOSPHOLIPID [Suspect]
     Active Substance: PHOSPHOLIPID
     Indication: Cholestasis of pregnancy
     Route: 048

REACTIONS (4)
  - Wernicke^s encephalopathy [Recovering/Resolving]
  - Normal newborn [Unknown]
  - Drug ineffective [Unknown]
  - Maternal exposure during pregnancy [Unknown]
